FAERS Safety Report 24404092 (Version 3)
Quarter: 2025Q2

REPORT INFORMATION
  Report Type: Spontaneous
  Country: DE (occurrence: DE)
  Receive Date: 20241007
  Receipt Date: 20250626
  Transmission Date: 20250717
  Serious: Yes (Life-Threatening, Hospitalization, Other)
  Sender: AUROBINDO
  Company Number: DE-002147023-NVSC2020DE331313

PATIENT
  Age: 66 Year
  Sex: Male
  Weight: 72.9 kg

DRUGS (101)
  1. OXALIPLATIN [Suspect]
     Active Substance: OXALIPLATIN
     Indication: B-cell lymphoma refractory
     Dosage: 251 MILLIGRAM, ONCE A DAY (251 MG ONCE)
     Route: 042
     Dates: start: 20201113
  2. OXALIPLATIN [Suspect]
     Active Substance: OXALIPLATIN
     Indication: B-cell lymphoma
  3. BENDAMUSTINE [Suspect]
     Active Substance: BENDAMUSTINE
     Indication: Product used for unknown indication
     Route: 065
  4. RITUXIMAB [Suspect]
     Active Substance: RITUXIMAB
     Indication: Plasma cell myeloma refractory
     Dosage: 723.75 MILLIGRAM, ONCE A DAY (723.75 MG ONCE)
     Route: 042
     Dates: start: 20201111
  5. RITUXIMAB [Suspect]
     Active Substance: RITUXIMAB
     Indication: B-cell lymphoma
  6. POLATUZUMAB VEDOTIN [Suspect]
     Active Substance: POLATUZUMAB VEDOTIN
     Indication: Product used for unknown indication
     Route: 065
  7. DECADRON [Suspect]
     Active Substance: DEXAMETHASONE
     Indication: Plasma cell myeloma refractory
     Dosage: 120 MILLIGRAM, ONCE A DAY
     Route: 048
     Dates: start: 20201113
  8. CYTARABINE [Suspect]
     Active Substance: CYTARABINE
     Indication: Plasma cell myeloma refractory
     Dosage: 15440 MILLIGRAM, ONCE A DAY
     Route: 042
     Dates: start: 20201114
  9. CYTARABINE [Suspect]
     Active Substance: CYTARABINE
     Indication: B-cell lymphoma
  10. FUROSEMIDE [Concomitant]
     Active Substance: FUROSEMIDE
     Indication: Oedema peripheral
     Route: 065
     Dates: start: 20201110, end: 20201110
  11. FUROSEMIDE [Concomitant]
     Active Substance: FUROSEMIDE
     Indication: Anuria
     Route: 065
     Dates: start: 20201120, end: 20201121
  12. FUROSEMIDE [Concomitant]
     Active Substance: FUROSEMIDE
     Indication: Dyspnoea
     Route: 065
     Dates: start: 20201122, end: 20201123
  13. FUROSEMIDE [Concomitant]
     Active Substance: FUROSEMIDE
     Route: 065
     Dates: start: 20201206, end: 20201206
  14. FUROSEMIDE [Concomitant]
     Active Substance: FUROSEMIDE
     Route: 065
     Dates: start: 20201207, end: 20201209
  15. FUROSEMIDE [Concomitant]
     Active Substance: FUROSEMIDE
     Route: 065
     Dates: start: 20201211, end: 20201211
  16. FUROSEMIDE [Concomitant]
     Active Substance: FUROSEMIDE
     Route: 065
     Dates: start: 20201214, end: 20201214
  17. FUROSEMIDE [Concomitant]
     Active Substance: FUROSEMIDE
     Route: 065
     Dates: start: 20201116, end: 20201116
  18. FUROSEMIDE [Concomitant]
     Active Substance: FUROSEMIDE
     Route: 065
     Dates: start: 20201114, end: 20201115
  19. PREDNISOLONE SODIUM SUCCINATE [Concomitant]
     Active Substance: PREDNISOLONE SODIUM SUCCINATE
     Indication: Premedication
     Route: 065
     Dates: start: 20201110, end: 20201111
  20. PREDNISOLONE SODIUM SUCCINATE [Concomitant]
     Active Substance: PREDNISOLONE SODIUM SUCCINATE
     Indication: Dyspnoea
     Route: 065
     Dates: start: 20201116, end: 20201116
  21. PREDNISOLONE SODIUM SUCCINATE [Concomitant]
     Active Substance: PREDNISOLONE SODIUM SUCCINATE
     Route: 065
     Dates: start: 20201211, end: 20201211
  22. Jonosteril [Concomitant]
     Indication: Prophylaxis
     Route: 065
     Dates: start: 20201120, end: 20201121
  23. Jonosteril [Concomitant]
     Route: 065
     Dates: start: 20201124, end: 20201126
  24. Jonosteril [Concomitant]
     Route: 065
     Dates: start: 20201203, end: 20201203
  25. Jonosteril [Concomitant]
     Route: 065
     Dates: start: 20201204, end: 20201204
  26. Jonosteril [Concomitant]
     Route: 065
     Dates: start: 20201207, end: 20201207
  27. Jonosteril [Concomitant]
     Route: 065
     Dates: start: 20201208, end: 20201208
  28. Jonosteril [Concomitant]
     Route: 065
     Dates: start: 20201209, end: 20201210
  29. Jonosteril [Concomitant]
     Route: 065
     Dates: start: 20201211, end: 20201212
  30. Jonosteril [Concomitant]
     Route: 065
     Dates: start: 20201114, end: 20201114
  31. Jonosteril [Concomitant]
     Route: 065
     Dates: start: 20201115, end: 20201116
  32. PIPERACILLIN SODIUM\TAZOBACTAM SODIUM [Concomitant]
     Active Substance: PIPERACILLIN SODIUM\TAZOBACTAM SODIUM
     Indication: Prophylaxis
     Route: 065
     Dates: start: 20201211, end: 20201211
  33. PIPERACILLIN SODIUM\TAZOBACTAM SODIUM [Concomitant]
     Active Substance: PIPERACILLIN SODIUM\TAZOBACTAM SODIUM
     Route: 065
     Dates: start: 20201112, end: 20201112
  34. ALLOPURINOL [Concomitant]
     Active Substance: ALLOPURINOL
     Indication: Prophylaxis
     Route: 065
     Dates: start: 20201128, end: 20201213
  35. ALLOPURINOL [Concomitant]
     Active Substance: ALLOPURINOL
     Route: 065
     Dates: start: 20201113, end: 20201114
  36. ALLOPURINOL [Concomitant]
     Active Substance: ALLOPURINOL
     Route: 065
     Dates: start: 20201118, end: 20201127
  37. EMEND [Concomitant]
     Active Substance: APREPITANT
     Indication: Prophylaxis of nausea and vomiting
     Route: 065
     Dates: start: 20201206, end: 20201207
  38. EMEND [Concomitant]
     Active Substance: APREPITANT
     Route: 065
     Dates: start: 20201114, end: 20201114
  39. EMEND [Concomitant]
     Active Substance: APREPITANT
     Route: 065
     Dates: start: 20201113, end: 20201113
  40. ONDANSETRON [Concomitant]
     Active Substance: ONDANSETRON
     Indication: Prophylaxis of nausea and vomiting
     Route: 065
     Dates: start: 20201206, end: 20201206
  41. ONDANSETRON [Concomitant]
     Active Substance: ONDANSETRON
     Indication: Prophylaxis
     Route: 065
     Dates: start: 20201113, end: 20201120
  42. ONDANSETRON [Concomitant]
     Active Substance: ONDANSETRON
     Route: 065
     Dates: start: 20201115, end: 20201115
  43. ONDANSETRON [Concomitant]
     Active Substance: ONDANSETRON
     Route: 065
     Dates: start: 20201116, end: 20201116
  44. ONDANSETRON [Concomitant]
     Active Substance: ONDANSETRON
     Route: 065
     Dates: start: 20201116, end: 20201116
  45. PANTOPRAZOLE SODIUM [Concomitant]
     Active Substance: PANTOPRAZOLE SODIUM
     Indication: Prophylaxis
     Route: 065
     Dates: start: 20201120, end: 20201202
  46. PANTOPRAZOLE SODIUM [Concomitant]
     Active Substance: PANTOPRAZOLE SODIUM
     Route: 065
     Dates: start: 20201113, end: 20201116
  47. PANTOPRAZOLE SODIUM [Concomitant]
     Active Substance: PANTOPRAZOLE SODIUM
     Route: 065
     Dates: start: 20201118, end: 20201119
  48. Dexasin [Concomitant]
     Indication: Prophylaxis
     Route: 065
     Dates: start: 20201206, end: 20201207
  49. Dexasin [Concomitant]
     Route: 065
     Dates: start: 20201114, end: 20201114
  50. AMLODIPINE BESYLATE [Concomitant]
     Active Substance: AMLODIPINE BESYLATE
     Indication: Hypertension
     Route: 065
     Dates: start: 20201120, end: 20201120
  51. AMLODIPINE BESYLATE [Concomitant]
     Active Substance: AMLODIPINE BESYLATE
     Route: 065
     Dates: start: 20201121, end: 20201202
  52. AMLODIPINE BESYLATE [Concomitant]
     Active Substance: AMLODIPINE BESYLATE
     Route: 065
     Dates: start: 20201211, end: 20201211
  53. AMLODIPINE BESYLATE [Concomitant]
     Active Substance: AMLODIPINE BESYLATE
     Route: 065
     Dates: start: 20201218, end: 20201219
  54. CARVEDILOL [Concomitant]
     Active Substance: CARVEDILOL
     Indication: Hypertension
     Route: 065
     Dates: start: 20201118, end: 20201118
  55. CARVEDILOL [Concomitant]
     Active Substance: CARVEDILOL
     Route: 065
     Dates: start: 20201211, end: 20201211
  56. CARVEDILOL [Concomitant]
     Active Substance: CARVEDILOL
     Route: 065
     Dates: start: 20201119, end: 20201119
  57. MORPHINE [Concomitant]
     Active Substance: MORPHINE
     Indication: Pain
     Route: 065
     Dates: start: 20201211, end: 20201211
  58. MORPHINE [Concomitant]
     Active Substance: MORPHINE
     Route: 065
     Dates: start: 20201118, end: 20201118
  59. DOXAZOSIN MESYLATE [Concomitant]
     Active Substance: DOXAZOSIN MESYLATE
     Indication: Hypertension
     Route: 065
     Dates: start: 20201211, end: 20201211
  60. DOXAZOSIN MESYLATE [Concomitant]
     Active Substance: DOXAZOSIN MESYLATE
     Route: 065
     Dates: start: 20201119, end: 20201211
  61. POTASSIUM CHLORIDE [Concomitant]
     Active Substance: POTASSIUM CHLORIDE
     Indication: Hypokalaemia
     Route: 065
     Dates: start: 20201122, end: 20201123
  62. POTASSIUM CHLORIDE [Concomitant]
     Active Substance: POTASSIUM CHLORIDE
     Indication: Prophylaxis
     Route: 065
     Dates: start: 20201126, end: 20201126
  63. POTASSIUM CHLORIDE [Concomitant]
     Active Substance: POTASSIUM CHLORIDE
     Route: 065
     Dates: start: 20201206, end: 20201208
  64. POTASSIUM PHOSPHATE, MONOBASIC\SODIUM PHOSPHATE, DIBASIC, ANHYDROUS [Concomitant]
     Active Substance: POTASSIUM PHOSPHATE, MONOBASIC\SODIUM PHOSPHATE, DIBASIC, ANHYDROUS
     Indication: Hypophosphataemia
     Route: 065
     Dates: start: 20201204, end: 20201204
  65. POTASSIUM PHOSPHATE, MONOBASIC\SODIUM PHOSPHATE, DIBASIC, ANHYDROUS [Concomitant]
     Active Substance: POTASSIUM PHOSPHATE, MONOBASIC\SODIUM PHOSPHATE, DIBASIC, ANHYDROUS
     Route: 065
     Dates: start: 20201206, end: 20201206
  66. POTASSIUM PHOSPHATE, MONOBASIC\SODIUM PHOSPHATE, DIBASIC, ANHYDROUS [Concomitant]
     Active Substance: POTASSIUM PHOSPHATE, MONOBASIC\SODIUM PHOSPHATE, DIBASIC, ANHYDROUS
     Route: 065
     Dates: start: 20201123, end: 20201123
  67. POTASSIUM PHOSPHATE, MONOBASIC\SODIUM PHOSPHATE, DIBASIC, ANHYDROUS [Concomitant]
     Active Substance: POTASSIUM PHOSPHATE, MONOBASIC\SODIUM PHOSPHATE, DIBASIC, ANHYDROUS
     Route: 065
     Dates: start: 20201123, end: 20201123
  68. MAGNESIUM [Concomitant]
     Active Substance: MAGNESIUM
     Indication: Hypomagnesaemia
     Route: 065
     Dates: start: 20201127, end: 20201202
  69. Natriumglycerophosphat [Concomitant]
     Indication: Prophylaxis
     Route: 065
     Dates: start: 20201206, end: 20201207
  70. Natriumglycerophosphat [Concomitant]
     Indication: Tumour lysis syndrome
     Route: 065
     Dates: start: 20201203, end: 20201203
  71. Cimetidin [Concomitant]
     Indication: Premedication
     Route: 065
     Dates: start: 20201204, end: 20201204
  72. ACETAMINOPHEN [Concomitant]
     Active Substance: ACETAMINOPHEN
     Indication: Premedication
     Route: 065
     Dates: start: 20201204, end: 20201204
  73. PREDNISOLONE [Concomitant]
     Active Substance: PREDNISOLONE
     Indication: Premedication
     Route: 065
     Dates: start: 20201204, end: 20201204
  74. CALCIUM [Concomitant]
     Active Substance: CALCIUM
     Indication: Hypocalcaemia
     Route: 065
     Dates: start: 20201206, end: 20201206
  75. CALCIUM [Concomitant]
     Active Substance: CALCIUM
     Indication: Prophylaxis
     Route: 065
     Dates: start: 20201207, end: 20201207
  76. CALCIUM [Concomitant]
     Active Substance: CALCIUM
     Indication: Tumour lysis syndrome
     Route: 065
     Dates: start: 20201208, end: 20201208
  77. CALCIUM [Concomitant]
     Active Substance: CALCIUM
     Route: 065
     Dates: start: 20201211, end: 20201211
  78. DIMETHINDENE [Concomitant]
     Active Substance: DIMETHINDENE
     Indication: Premedication
     Route: 065
     Dates: start: 20201116, end: 20201116
  79. DIMETHINDENE [Concomitant]
     Active Substance: DIMETHINDENE
     Indication: Dyspnoea
     Route: 065
     Dates: start: 20201204, end: 20201204
  80. DIMETHINDENE [Concomitant]
     Active Substance: DIMETHINDENE
     Route: 065
     Dates: start: 20201211, end: 20201211
  81. HYDROCHLOROTHIAZIDE [Concomitant]
     Active Substance: HYDROCHLOROTHIAZIDE
     Indication: Oedema peripheral
     Route: 065
     Dates: start: 20201206, end: 20201211
  82. CALCIUM GLUCONATE [Concomitant]
     Active Substance: CALCIUM GLUCONATE
     Indication: Hypocalcaemia
     Route: 065
     Dates: start: 20201208, end: 20201210
  83. CALCIUM GLUCONATE [Concomitant]
     Active Substance: CALCIUM GLUCONATE
     Indication: Tumour lysis syndrome
  84. ALBUMIN HUMAN [Concomitant]
     Active Substance: ALBUMIN HUMAN
     Indication: Prophylaxis
     Route: 065
     Dates: start: 20201208, end: 20201210
  85. NEUPOGEN [Concomitant]
     Active Substance: FILGRASTIM
     Indication: Haematopoietic stem cell mobilisation
     Route: 065
     Dates: start: 20201209, end: 20201210
  86. CARBIMAZOLE [Concomitant]
     Active Substance: CARBIMAZOLE
     Indication: Hyperthyroidism
     Route: 065
     Dates: start: 20201211, end: 20201211
  87. Citidine [Concomitant]
     Indication: Premedication
     Route: 065
     Dates: start: 20201211, end: 20201211
  88. CLARITHROMYCIN [Concomitant]
     Active Substance: CLARITHROMYCIN
     Indication: Prophylaxis
     Route: 065
     Dates: start: 20201211, end: 20201211
  89. FIBRINOGEN [Concomitant]
     Active Substance: FIBRINOGEN HUMAN
     Indication: Haemoptysis
     Route: 065
     Dates: start: 20201211, end: 20201211
  90. SODIUM PERCHLORATE [Concomitant]
     Active Substance: SODIUM PERCHLORATE
     Indication: Hyperthyroidism
     Route: 065
     Dates: start: 20201211, end: 20201211
  91. URAPIDIL [Concomitant]
     Active Substance: URAPIDIL
     Indication: Hypertension
     Route: 065
     Dates: start: 20201211, end: 20201211
  92. PANTOZOL [Concomitant]
     Active Substance: PANTOPRAZOLE SODIUM
     Indication: Prophylaxis
     Route: 065
     Dates: start: 20201211, end: 20201211
  93. MANNITOL [Concomitant]
     Active Substance: MANNITOL
     Indication: Prophylaxis
     Route: 065
     Dates: start: 20201205, end: 20201205
  94. MANNITOL [Concomitant]
     Active Substance: MANNITOL
     Route: 065
     Dates: start: 20201113, end: 20201113
  95. RASBURICASE [Concomitant]
     Active Substance: RASBURICASE
     Indication: Prophylaxis
     Route: 065
     Dates: start: 20201114, end: 20201114
  96. COTRIM [Concomitant]
     Active Substance: SULFAMETHOXAZOLE\TRIMETHOPRIM
     Indication: Infection prophylaxis
     Route: 065
     Dates: start: 20201116, end: 20201116
  97. DIGOXIN [Concomitant]
     Active Substance: DIGOXIN
     Indication: Tachyarrhythmia
     Route: 065
     Dates: start: 20201116, end: 20201116
  98. METOPROLOL [Concomitant]
     Active Substance: METOPROLOL
     Indication: Tachyarrhythmia
     Route: 065
     Dates: start: 20201116, end: 20201116
  99. NEULASTA [Concomitant]
     Active Substance: PEGFILGRASTIM
     Indication: Prophylaxis
     Route: 065
  100. BISOPROLOL [Concomitant]
     Active Substance: BISOPROLOL
     Indication: Hypertension
     Route: 065
     Dates: start: 20201117, end: 20201117
  101. Retaron [Concomitant]
     Indication: Retinal degeneration
     Route: 065
     Dates: start: 20201202

REACTIONS (2)
  - Tumour lysis syndrome [Recovered/Resolved]
  - Dyspnoea [Recovered/Resolved]

NARRATIVE: CASE EVENT DATE: 20201203
